FAERS Safety Report 8988261 (Version 1)
Quarter: 2012Q4

REPORT INFORMATION
  Report Type: 
  Country: BR (occurrence: BR)
  Receive Date: 20121227
  Receipt Date: 20121227
  Transmission Date: 20130627
  Serious: Yes (Other)
  Sender: FDA-Public Use
  Company Number: BR-ASTRAZENECA-2012SE94976

PATIENT
  Age: 80 Year
  Sex: Male

DRUGS (8)
  1. SEROQUEL [Suspect]
     Route: 048
     Dates: start: 20120813, end: 20120825
  2. CRESTOR [Suspect]
     Dosage: ONCE DAILY
     Route: 048
  3. DECADRON [Suspect]
     Route: 042
     Dates: start: 20120813, end: 20120825
  4. ANCORON [Concomitant]
     Route: 048
  5. PANTOCAL [Concomitant]
     Route: 048
  6. HIDANTAL [Concomitant]
     Route: 042
  7. RASILEZ [Concomitant]
     Route: 048
  8. NATURETTI [Concomitant]
     Route: 048

REACTIONS (2)
  - Altered state of consciousness [Unknown]
  - Blood pressure decreased [Unknown]
